FAERS Safety Report 9031485 (Version 7)
Quarter: 2015Q1

REPORT INFORMATION
  Report Type: Report from Study
  Country: DE (occurrence: DE)
  Receive Date: 20130124
  Receipt Date: 20150130
  Transmission Date: 20150721
  Serious: Yes (Death, Life-Threatening, Hospitalization, Other)
  Sender: FDA-Public Use
  Company Number: DE-PFIZER INC-2013019629

PATIENT
  Age: 62 Year
  Sex: Male
  Weight: 75.5 kg

DRUGS (32)
  1. DELIX [Concomitant]
     Active Substance: RAMIPRIL
     Dosage: 2.5 MG, UNK
     Dates: start: 20110713, end: 20110930
  2. NOVALGIN [Concomitant]
     Active Substance: METAMIZOLE SODIUM
     Dosage: 160 DROPS, DAILY
     Dates: start: 20130309, end: 20130705
  3. FRAXIPARINE [Concomitant]
     Active Substance: NADROPARIN CALCIUM
     Dosage: 0.3 ML, UNK
     Dates: start: 20110713, end: 20110921
  4. KLACID PRO [Suspect]
     Active Substance: CLARITHROMYCIN
     Dosage: 1000 MG, 2X/DAY
     Dates: start: 20110922, end: 20111004
  5. NOVALGIN [Concomitant]
     Active Substance: METAMIZOLE SODIUM
     Dosage: 120 DROPS, UNK
     Dates: start: 20110713, end: 20110921
  6. FRAXIPARINE [Concomitant]
     Active Substance: NADROPARIN CALCIUM
     Dosage: 0.4 ML, UNK
     Dates: start: 20130304, end: 20130309
  7. TALVOSILEN [Concomitant]
     Dosage: 2000/40 MG, UNK
     Dates: start: 20120102, end: 20130307
  8. RAMIPRIL. [Concomitant]
     Active Substance: RAMIPRIL
     Dosage: 1 MG, 2X/DAY, 1 - 0 - 1
     Dates: start: 20120102, end: 20130705
  9. DEXAMETHASONE. [Concomitant]
     Active Substance: DEXAMETHASONE
     Dosage: 12 MG, UNK
     Dates: start: 20110713, end: 20110714
  10. DEXAMETHASONE. [Concomitant]
     Active Substance: DEXAMETHASONE
     Dosage: 8 MG, UNK
     Dates: start: 20130712, end: 20130712
  11. LEVETIRACETAM. [Concomitant]
     Active Substance: LEVETIRACETAM
     Dosage: 500 MG, UNK
     Dates: start: 20130705
  12. KLACID [Concomitant]
     Active Substance: CLARITHROMYCIN
     Dosage: 200 MG, UNK
     Dates: start: 20110930, end: 20110930
  13. FURADANTIN RETARD [Concomitant]
     Dosage: 100 MG, 2X/DAY
     Dates: start: 20110908, end: 20110916
  14. DEXAMETHASONE. [Concomitant]
     Active Substance: DEXAMETHASONE
     Dosage: 6 MG, UNK
     Dates: start: 20110715, end: 20110717
  15. DEXAMETHASONE. [Concomitant]
     Active Substance: DEXAMETHASONE
     Dosage: 6 MG, UNK
     Dates: start: 2013
  16. DELIX PLUS [Concomitant]
     Active Substance: HYDROCHLOROTHIAZIDE\RAMIPRIL
     Dosage: 5/25 MG, UNK
     Dates: start: 20130705
  17. BEVACIZUMAB [Suspect]
     Active Substance: BEVACIZUMAB
     Dosage: 770 MG, 1 IN 2 WK
     Route: 042
     Dates: start: 20111109
  18. COTRIM [Suspect]
     Active Substance: SULFAMETHOXAZOLE\TRIMETHOPRIM
     Dosage: 4320 MG
     Dates: start: 20110922, end: 20111004
  19. PANTOPRAZOLE [Concomitant]
     Active Substance: PANTOPRAZOLE SODIUM
     Dosage: 40 MG, UNK
     Dates: start: 20110713
  20. CLEXANE [Concomitant]
     Active Substance: ENOXAPARIN SODIUM
     Dosage: 1.6 ML, UNK
     Dates: start: 20110930, end: 20111223
  21. PREDNISONE. [Concomitant]
     Active Substance: PREDNISONE
     Dosage: 20 MG, UNK
     Dates: start: 20110930
  22. IRINOTECAN HCL [Suspect]
     Active Substance: IRINOTECAN HYDROCHLORIDE
     Dosage: 235 MG, 1 IN 2 WK
     Route: 042
     Dates: start: 20111012
  23. COTRIM [Suspect]
     Active Substance: SULFAMETHOXAZOLE\TRIMETHOPRIM
     Dosage: 3-3-3
     Dates: start: 20110930, end: 20111007
  24. BEVACIZUMAB [Suspect]
     Active Substance: BEVACIZUMAB
     Indication: GLIOBLASTOMA
     Dosage: 770 MG, 1 IN 2 WK
     Route: 042
     Dates: start: 20110803
  25. KEPPRA [Concomitant]
     Active Substance: LEVETIRACETAM
     Dosage: 1500 MG, UNK
     Dates: start: 20110713, end: 20130705
  26. KEPPRA [Concomitant]
     Active Substance: LEVETIRACETAM
     Dosage: 1500 MG, UNK
     Dates: start: 20111006
  27. CLEXANE [Concomitant]
     Active Substance: ENOXAPARIN SODIUM
     Dosage: 16000 IU, UNK
     Dates: start: 20110930
  28. DEXAMETHASONE. [Concomitant]
     Active Substance: DEXAMETHASONE
     Dosage: 12 MG, UNK
     Dates: start: 20130702, end: 2013
  29. DEXAMETHASONE. [Concomitant]
     Active Substance: DEXAMETHASONE
     Dosage: 8 MG, UNK
     Dates: start: 20130726, end: 20130726
  30. IRINOTECAN HCL [Suspect]
     Active Substance: IRINOTECAN HYDROCHLORIDE
     Indication: GLIOBLASTOMA
     Dosage: 235 MG, 1 IN 2 WK
     Route: 042
     Dates: start: 20110914
  31. KLACID PRO [Suspect]
     Active Substance: CLARITHROMYCIN
     Dosage: 2000 MG, UNK
     Dates: start: 20110930, end: 20111007
  32. FORTECORTIN [Concomitant]
     Active Substance: DEXAMETHASONE
     Dosage: 20 MG, UNK
     Dates: start: 20110713, end: 20110921

REACTIONS (5)
  - Pulmonary embolism [Recovered/Resolved]
  - Acute kidney injury [Recovered/Resolved]
  - General physical health deterioration [Unknown]
  - General physical condition abnormal [Fatal]
  - General physical condition abnormal [Recovered/Resolved]

NARRATIVE: CASE EVENT DATE: 20110918
